FAERS Safety Report 22539774 (Version 1)
Quarter: 2023Q2

REPORT INFORMATION
  Report Type: Spontaneous
  Country: DE (occurrence: DE)
  Receive Date: 20230609
  Receipt Date: 20230609
  Transmission Date: 20230721
  Serious: Yes (Other)
  Sender: FDA-Public Use
  Company Number: DE-EMBRYOTOX-202212840

PATIENT
  Sex: Female
  Weight: 3.68 kg

DRUGS (1)
  1. LAMOTRIGINE [Suspect]
     Active Substance: LAMOTRIGINE
     Indication: Product used for unknown indication
     Dosage: 400 [MG/D ]/ COMPLETE PREGNANCY AND FIRST WEEKS PP 400MG DAILY, REDUCED TO 350MG DAILY

REACTIONS (3)
  - Poor weight gain neonatal [Recovered/Resolved]
  - Somnolence [Recovered/Resolved]
  - Foetal exposure during pregnancy [Unknown]
